FAERS Safety Report 8354714-1 (Version None)
Quarter: 2012Q2

REPORT INFORMATION
  Report Type: 
  Country: None (occurrence: None)
  Receive Date: 20120511
  Receipt Date: 20120504
  Transmission Date: 20120825
  Serious: Yes (Hospitalization, Other)
  Sender: FDA-Public Use
  Company Number: US-GLAXOSMITHKLINE-A0943044A

PATIENT
  Age: 67 Year
  Sex: Male
  Weight: 82.7 kg

DRUGS (6)
  1. PLENDIL [Concomitant]
  2. LISINOPRIL [Concomitant]
  3. GLIPIZIDE [Concomitant]
  4. ACTOS [Concomitant]
  5. AVANDIA [Suspect]
     Indication: DIABETES MELLITUS
     Dosage: 4MG TWICE PER DAY
     Route: 048
     Dates: start: 20021001, end: 20050201
  6. ZOCOR [Concomitant]

REACTIONS (6)
  - OXYGEN SUPPLEMENTATION [None]
  - DEPRESSION [None]
  - WEIGHT DECREASED [None]
  - CORONARY ARTERY DISEASE [None]
  - FLUID RETENTION [None]
  - DECREASED APPETITE [None]
